FAERS Safety Report 17950299 (Version 1)
Quarter: 2020Q2

REPORT INFORMATION
  Report Type: Spontaneous
  Country: US (occurrence: US)
  Receive Date: 20200626
  Receipt Date: 20200626
  Transmission Date: 20200714
  Serious: No
  Sender: FDA-Public Use
  Company Number: None

PATIENT
  Age: 12 Year
  Sex: Male
  Weight: 57.6 kg

DRUGS (2)
  1. QUETIAPINE 50 MG [Suspect]
     Active Substance: QUETIAPINE
     Indication: ANXIETY DISORDER
     Dosage: ?          QUANTITY:1 TABLET(S);?
     Route: 048
     Dates: start: 20191217, end: 20200103
  2. GUANFACINE. [Concomitant]
     Active Substance: GUANFACINE

REACTIONS (4)
  - Scratch [None]
  - Crying [None]
  - Hallucination [None]
  - Screaming [None]

NARRATIVE: CASE EVENT DATE: 20191224
